FAERS Safety Report 24610606 (Version 2)
Quarter: 2025Q1

REPORT INFORMATION
  Report Type: Spontaneous
  Country: US (occurrence: US)
  Receive Date: 20241112
  Receipt Date: 20250127
  Transmission Date: 20250408
  Serious: No
  Sender: APOLLO PHARMACEUTICALS
  Company Number: US-PROVEPHARM, INC.-2024-APO-000086

PATIENT

DRUGS (2)
  1. DIHYDROERGOTAMINE MESYLATE [Suspect]
     Active Substance: DIHYDROERGOTAMINE MESYLATE
     Indication: Migraine
     Route: 065
  2. DIHYDROERGOTAMINE MESYLATE [Suspect]
     Active Substance: DIHYDROERGOTAMINE MESYLATE
     Indication: Cluster headache

REACTIONS (2)
  - Product with quality issue administered [Recovered/Resolved]
  - Off label use [Recovered/Resolved]
